FAERS Safety Report 19309203 (Version 1)
Quarter: 2021Q2

REPORT INFORMATION
  Report Type: Spontaneous
  Country: US (occurrence: US)
  Receive Date: 20210525
  Receipt Date: 20210525
  Transmission Date: 20210717
  Serious: Yes (Other)
  Sender: FDA-Public Use
  Company Number: US-GLAXOSMITHKLINE-US2021GSK111853

PATIENT
  Sex: Male

DRUGS (12)
  1. RANITIDINE HYDROCHLORIDE. [Suspect]
     Active Substance: RANITIDINE HYDROCHLORIDE
     Indication: DYSPEPSIA
     Dosage: 75 MG, 2?3 X DAILY
     Route: 065
     Dates: start: 201610, end: 201904
  2. RANITIDINE HYDROCHLORIDE. [Suspect]
     Active Substance: RANITIDINE HYDROCHLORIDE
     Indication: DYSPEPSIA
     Dosage: 75 MG, 2?3 X DAILY
     Route: 065
     Dates: start: 201610, end: 201904
  3. RANITIDINE CAPSULE [Suspect]
     Active Substance: RANITIDINE
     Dosage: 150 MG, 2?3 X DAILY
     Route: 065
     Dates: start: 201610, end: 201904
  4. ZANTAC [Suspect]
     Active Substance: RANITIDINE HYDROCHLORIDE
     Dosage: 150 MG, 2?3 X DAILY
     Route: 065
     Dates: start: 201610, end: 201904
  5. ZANTAC [Suspect]
     Active Substance: RANITIDINE HYDROCHLORIDE
     Indication: DYSPEPSIA
     Dosage: 75 MG, 2?3 X DAILY
     Route: 065
     Dates: start: 201610, end: 201904
  6. RANITIDINE HYDROCHLORIDE. [Suspect]
     Active Substance: RANITIDINE HYDROCHLORIDE
     Dosage: 150 MG, 2?3 X DAILY
     Route: 065
     Dates: start: 201610, end: 201904
  7. RANITIDINE HYDROCHLORIDE. [Suspect]
     Active Substance: RANITIDINE HYDROCHLORIDE
     Dosage: 150 MG, 2?3 X DAILY
     Route: 065
     Dates: start: 201610, end: 201904
  8. ZANTAC [Suspect]
     Active Substance: RANITIDINE HYDROCHLORIDE
     Dosage: 150 MG, 2?3 X DAILY
     Route: 065
     Dates: start: 201610, end: 201904
  9. ZANTAC [Suspect]
     Active Substance: RANITIDINE HYDROCHLORIDE
     Dosage: 150 MG, 2?3 X DAILY
     Route: 065
     Dates: start: 201610, end: 201904
  10. ZANTAC [Suspect]
     Active Substance: RANITIDINE HYDROCHLORIDE
     Indication: DYSPEPSIA
     Dosage: 75 MG, 2?3 X DAILY
     Route: 065
     Dates: start: 201610, end: 201904
  11. ZANTAC [Suspect]
     Active Substance: RANITIDINE HYDROCHLORIDE
     Indication: DYSPEPSIA
     Dosage: 75 MG, 2?3 X DAILY
     Route: 065
     Dates: start: 201610, end: 201904
  12. RANITIDINE CAPSULE [Suspect]
     Active Substance: RANITIDINE
     Indication: DYSPEPSIA
     Dosage: 75 MG, 2?3 X DAILY
     Route: 065
     Dates: start: 201610, end: 201904

REACTIONS (1)
  - Thymic cancer metastatic [Unknown]
